FAERS Safety Report 20437932 (Version 3)
Quarter: 2022Q1

REPORT INFORMATION
  Report Type: Report from Study
  Country: CA (occurrence: CA)
  Receive Date: 20220207
  Receipt Date: 20220301
  Transmission Date: 20220423
  Serious: Yes (Disabling)
  Sender: FDA-Public Use
  Company Number: CA-MYLANLABS-2022M1009925

PATIENT
  Age: 46 Year
  Sex: Female

DRUGS (2)
  1. HULIO [Interacting]
     Active Substance: ADALIMUMAB-FKJP
     Indication: Crohn^s disease
     Dosage: 40 MILLIGRAM, BIWEEKLY
  2. IMURAN [Interacting]
     Active Substance: AZATHIOPRINE
     Indication: Product used for unknown indication
     Dosage: UNK
     Dates: end: 20220206

REACTIONS (5)
  - Arthralgia [Unknown]
  - Therapeutic response shortened [Unknown]
  - Drug interaction [Unknown]
  - Swelling face [Unknown]
  - Drug ineffective [Unknown]
